FAERS Safety Report 9087060 (Version 1)
Quarter: 2013Q1

REPORT INFORMATION
  Report Type: Report from Study
  Country: US (occurrence: US)
  Receive Date: 20130130
  Receipt Date: 20130130
  Transmission Date: 20140127
  Serious: No
  Sender: FDA-Public Use
  Company Number: US-ABBOTT-12P-163-0979003-00

PATIENT
  Sex: Female
  Weight: 79 kg

DRUGS (6)
  1. HUMIRA [Suspect]
     Indication: CROHN^S DISEASE
     Route: 058
     Dates: start: 201107, end: 201206
  2. PREDNISONE [Suspect]
     Indication: CROHN^S DISEASE
     Dates: end: 201204
  3. IMURAN [Suspect]
     Indication: CROHN^S DISEASE
     Dates: end: 201202
  4. TOPROL [Concomitant]
     Indication: HEART RATE INCREASED
  5. NEXIUM [Concomitant]
     Indication: GASTROOESOPHAGEAL REFLUX DISEASE
  6. BABY ASPIRIN [Concomitant]
     Indication: THROMBOCYTOSIS

REACTIONS (2)
  - Non-alcoholic steatohepatitis [Unknown]
  - Hepatic enzyme increased [Not Recovered/Not Resolved]
